FAERS Safety Report 17345657 (Version 2)
Quarter: 2020Q1

REPORT INFORMATION
  Report Type: Spontaneous
  Country: US (occurrence: US)
  Receive Date: 20200129
  Receipt Date: 20200207
  Transmission Date: 20200409
  Serious: Yes (Life-Threatening, Hospitalization)
  Sender: FDA-Public Use
  Company Number: US-TEVA-2020-US-1175318

PATIENT
  Age: 79 Year
  Sex: Female

DRUGS (2)
  1. ATORVASTATIN [Suspect]
     Active Substance: ATORVASTATIN
     Route: 065
  2. ATORVASTATIN [Suspect]
     Active Substance: ATORVASTATIN
     Route: 065

REACTIONS (5)
  - Pneumonia klebsiella [Recovering/Resolving]
  - Fluid overload [Recovering/Resolving]
  - Respiratory failure [Recovering/Resolving]
  - Myopathy [Recovering/Resolving]
  - Rhabdomyolysis [Recovering/Resolving]
